FAERS Safety Report 5910896-X (Version None)
Quarter: 2008Q4

REPORT INFORMATION
  Report Type: 
  Country: None (occurrence: None)
  Receive Date: 20081007
  Receipt Date: 20080630
  Transmission Date: 20090506
  Serious: No
  Sender: FDA-Public Use
  Company Number: US-ASTRAZENECA-2008UW13072

PATIENT
  Age: 78 Year
  Sex: Female
  Weight: 59.9 kg

DRUGS (6)
  1. ARIMIDEX [Suspect]
     Indication: BREAST CANCER
     Route: 048
  2. INDERAL [Concomitant]
  3. ANAPROX [Concomitant]
  4. SYNTHROID [Concomitant]
  5. NO MATCH [Concomitant]
  6. ATIVAN [Concomitant]

REACTIONS (2)
  - DRUG INTERACTION [None]
  - PRURITUS GENERALISED [None]
